FAERS Safety Report 19873354 (Version 2)
Quarter: 2021Q4

REPORT INFORMATION
  Report Type: Spontaneous
  Country: US (occurrence: US)
  Receive Date: 20210923
  Receipt Date: 20211014
  Transmission Date: 20220303
  Serious: Yes (Life-Threatening, Hospitalization)
  Sender: FDA-Public Use
  Company Number: US-APOTEX-2021AP042743

PATIENT
  Age: 71 Year
  Sex: Female
  Weight: 73 kg

DRUGS (36)
  1. TOLVAPTAN [Suspect]
     Active Substance: TOLVAPTAN
     Indication: Hyponatraemia
     Dosage: 15 MILLIGRAM, SINGLE
     Route: 048
     Dates: start: 20210710, end: 20210710
  2. TALAZOPARIB [Suspect]
     Active Substance: TALAZOPARIB
     Indication: Neoplasm
     Dosage: 1 MILLIGRAM, CYCLE 1: ONCE DAILY FOR DAY-9 AND DAY1-DAY28 CONTINUED
     Route: 065
     Dates: start: 20210114, end: 20210704
  3. TALAZOPARIB [Suspect]
     Active Substance: TALAZOPARIB
     Dosage: 1 MILLIGRAM, ONCE DAILY (QD) IN 28-DAY CYCLES
     Route: 065
  4. TALAZOPARIB [Suspect]
     Active Substance: TALAZOPARIB
     Dosage: 0.75 MILLIGRAM
     Route: 048
     Dates: start: 20210928
  5. METFORMIN HYDROCHLORIDE [Concomitant]
     Active Substance: METFORMIN HYDROCHLORIDE
     Indication: Type 2 diabetes mellitus
     Dosage: UNK
     Route: 065
     Dates: start: 20210706, end: 20210710
  6. DEXTROSE\SODIUM CHLORIDE [Concomitant]
     Active Substance: DEXTROSE\SODIUM CHLORIDE
     Indication: Hyponatraemia
     Dosage: UNK
     Route: 065
     Dates: start: 20210705
  7. GLIMEPIRIDE [Concomitant]
     Active Substance: GLIMEPIRIDE
     Indication: Type 2 diabetes mellitus
     Dosage: UNK
     Route: 065
     Dates: end: 20210610
  8. AMINO ACIDS [Concomitant]
     Active Substance: AMINO ACIDS
     Indication: Hyponatraemia
     Dosage: UNK
     Route: 065
     Dates: start: 20210705
  9. POTASSIUM CHLORIDE [Concomitant]
     Active Substance: POTASSIUM CHLORIDE
     Indication: Hyponatraemia
     Dosage: UNK
     Route: 065
     Dates: start: 20210705
  10. WATER-SOLUBLE VITAMINS [Concomitant]
     Indication: Hyponatraemia
     Dosage: UNK
     Route: 065
     Dates: start: 20210705
  11. DEXTROSE [Concomitant]
     Active Substance: DEXTROSE
     Indication: Hyponatraemia
     Dosage: UNK
     Route: 065
     Dates: start: 20210705
  12. FUROSEMIDE [Concomitant]
     Active Substance: FUROSEMIDE
     Indication: Hyponatraemia
     Dosage: UNK
     Route: 065
     Dates: start: 20210705, end: 20210709
  13. ALBUMIN HUMAN [Concomitant]
     Active Substance: ALBUMIN HUMAN
     Indication: Hypoalbuminaemia
     Dosage: UNK
     Route: 065
     Dates: start: 20210705, end: 20210710
  14. GRANULOCYTE COLONY-STIMULATING FACTOR NOS [Concomitant]
     Active Substance: GRANULOCYTE COLONY-STIMULATING FACTOR NOS
     Indication: White blood cell count decreased
     Dosage: UNK
     Route: 065
     Dates: start: 20210705, end: 20210707
  15. GRANULOCYTE COLONY-STIMULATING FACTOR NOS [Concomitant]
     Active Substance: GRANULOCYTE COLONY-STIMULATING FACTOR NOS
     Indication: Neutrophil count decreased
  16. SODIUM CHLORIDE [Concomitant]
     Active Substance: SODIUM CHLORIDE
     Indication: Hyponatraemia
     Dosage: UNK
     Route: 065
     Dates: start: 20210705
  17. SODIUM CHLORIDE [Concomitant]
     Active Substance: SODIUM CHLORIDE
     Dosage: UNK
     Route: 065
     Dates: start: 20210706, end: 20210711
  18. SODIUM CHLORIDE [Concomitant]
     Active Substance: SODIUM CHLORIDE
     Indication: Hyponatraemia
     Dosage: UNK
     Route: 065
     Dates: start: 20210706, end: 20210711
  19. INSULIN NOS [Concomitant]
     Active Substance: INSULIN NOS
     Indication: Type 2 diabetes mellitus
     Dosage: UNK
     Route: 065
     Dates: start: 20210705, end: 20210711
  20. INSULIN NOS [Concomitant]
     Active Substance: INSULIN NOS
     Dosage: 14 INTERNATIONAL UNIT
     Route: 065
  21. DOPAMINE [Concomitant]
     Active Substance: DOPAMINE HYDROCHLORIDE
     Indication: Immunisation
     Dosage: UNK
     Route: 065
     Dates: start: 20210705
  22. NOREPINEPHRINE [Concomitant]
     Active Substance: NOREPINEPHRINE
     Indication: Immunisation
     Dosage: UNK
     Route: 065
     Dates: start: 20210711, end: 20210712
  23. FENTANYL [Concomitant]
     Active Substance: FENTANYL
     Indication: Analgesic therapy
     Dosage: 0.1 MILLIGRAM
     Route: 065
     Dates: start: 20210711
  24. MIDAZOLAM [Concomitant]
     Active Substance: MIDAZOLAM
     Indication: Stress
     Dosage: UNK
     Route: 065
     Dates: start: 20210711, end: 20210717
  25. DEXMEDETOMIDINE HYDROCHLORIDE [Concomitant]
     Active Substance: DEXMEDETOMIDINE HYDROCHLORIDE
     Indication: Stress
     Dosage: UNK
     Route: 065
     Dates: start: 20210712, end: 20210716
  26. REMIFENTANIL [Concomitant]
     Active Substance: REMIFENTANIL
     Indication: Analgesic drug level
     Dosage: UNK
     Route: 065
     Dates: start: 20210711, end: 20210717
  27. PROPOFOL [Concomitant]
     Active Substance: PROPOFOL
     Indication: Analgesic drug level
     Dosage: 500 MILLIGRAM
     Route: 065
     Dates: start: 20210711
  28. HYDROCORTISONE [Concomitant]
     Active Substance: HYDROCORTISONE
     Indication: Shock
     Dosage: UNK
     Route: 065
     Dates: start: 20210711, end: 20210712
  29. CEFOXITIN [Concomitant]
     Active Substance: CEFOXITIN SODIUM
     Indication: Anti-infective therapy
     Dosage: 2 MILLIGRAM
     Route: 065
  30. LIDOCAINE [Concomitant]
     Active Substance: LIDOCAINE
     Indication: Local anaesthesia
     Dosage: 100 MILLIGRAM
     Route: 065
     Dates: start: 20210711
  31. HEPARIN SODIUM [Concomitant]
     Active Substance: HEPARIN SODIUM
     Indication: Embolism
     Dosage: 12500 U
     Route: 065
     Dates: start: 20210711, end: 20210719
  32. HEPARIN CALCIUM [Concomitant]
     Active Substance: HEPARIN CALCIUM
     Indication: Embolism
     Dosage: 0.4 MILLILITER
     Route: 065
     Dates: start: 20210711, end: 20210719
  33. SODIUM POTASSIUM MAGNESIUM CALCIUM AND GLUCOSE [Concomitant]
     Indication: Hypokalaemia
     Dosage: UNK
     Route: 065
     Dates: start: 20210711, end: 20210713
  34. POTASSIUM CITRATE [Concomitant]
     Active Substance: POTASSIUM CITRATE
     Indication: Hypokalaemia
     Dosage: 2 GRAM
     Route: 065
     Dates: start: 20210717, end: 20210719
  35. LYSINE ACETYLSALICYLATE [Concomitant]
     Active Substance: ASPIRIN DL-LYSINE
     Indication: Pyrexia
     Dosage: 0.9 GRAM
     Route: 042
  36. MANNITOL [Concomitant]
     Active Substance: MANNITOL
     Indication: Dehydration
     Dosage: 125 MILLIGRAM
     Route: 065

REACTIONS (1)
  - Hypernatraemia [Recovered/Resolved]

NARRATIVE: CASE EVENT DATE: 20210711
